FAERS Safety Report 5930186-9 (Version None)
Quarter: 2008Q4

REPORT INFORMATION
  Report Type: 
  Country: None (occurrence: None)
  Receive Date: 20081024
  Receipt Date: 20081014
  Transmission Date: 20090506
  Serious: Yes (Other)
  Sender: FDA-Public Use
  Company Number: US-PFIZER INC-2008087138

PATIENT
  Sex: Female

DRUGS (3)
  1. LIPITOR [Suspect]
  2. ARICEPT [Suspect]
  3. TYLENOL (CAPLET) [Concomitant]

REACTIONS (2)
  - DECREASED APPETITE [None]
  - LOSS OF CONSCIOUSNESS [None]
